FAERS Safety Report 5888034-1 (Version None)
Quarter: 2008Q3

REPORT INFORMATION
  Report Type: 
  Country: None (occurrence: None)
  Receive Date: 20080918
  Receipt Date: 20080910
  Transmission Date: 20090109
  Serious: Yes (Death)
  Sender: FDA-Public Use
  Company Number: DE-ROCHE-585564

PATIENT
  Sex: Female
  Weight: 65 kg

DRUGS (2)
  1. CAPECITABINE [Suspect]
     Indication: COLORECTAL CANCER
     Dosage: 1250MG/M TWICE DAILY, ORALLY DAY 1 - 14 , 3-WEEKLY CYCLE
     Route: 048
     Dates: start: 20080509, end: 20080908
  2. BEVACIZUMAB [Suspect]
     Indication: COLORECTAL CANCER
     Dosage: 7,5 MG/KG ON DAY 1 REPEATED DAY 22 (3-WEEKLY).    DAY 1, REPEATED DAY 22 (3-WEEKLY)
     Route: 042
     Dates: start: 20080509, end: 20080829

REACTIONS (1)
  - DEATH [None]
